FAERS Safety Report 6997739-0 (Version None)
Quarter: 2010Q3

REPORT INFORMATION
  Report Type: 
  Country: None (occurrence: None)
  Receive Date: 20100919
  Receipt Date: 20100908
  Transmission Date: 20110219
  Serious: Yes (Other)
  Sender: FDA-Public Use
  Company Number: PHHY2010US59744

PATIENT
  Sex: Female
  Weight: 47.166 kg

DRUGS (2)
  1. RECLAST [Suspect]
     Indication: OSTEOPOROSIS
     Dosage: 5 MG YEARLY
     Route: 042
     Dates: start: 20100801
  2. METHOTREXATE [Concomitant]
     Dosage: UNK

REACTIONS (4)
  - C-REACTIVE PROTEIN INCREASED [None]
  - HAND FRACTURE [None]
  - MYALGIA [None]
  - RED BLOOD CELL SEDIMENTATION RATE INCREASED [None]
